FAERS Safety Report 4474834-1 (Version None)
Quarter: 2004Q4

REPORT INFORMATION
  Report Type: 
  Country: None (occurrence: None)
  Receive Date: 20041014
  Receipt Date: 20040831
  Transmission Date: 20050328
  Serious: Yes (Hospitalization, Disabling)
  Sender: FDA-Public Use
  Company Number: GB-MERCK-0409GBR00019

PATIENT
  Age: 79 Year
  Sex: Female
  Weight: 66 kg

DRUGS (7)
  1. FOSAMAX [Suspect]
     Indication: OSTEOPOROSIS
     Route: 048
     Dates: start: 20020107
  2. FOSAMAX [Suspect]
     Route: 048
     Dates: start: 20031204, end: 20040801
  3. ATENOLOL [Concomitant]
     Indication: HYPERTENSION
     Route: 065
     Dates: start: 20030115, end: 20040601
  4. BISOPROLOL [Concomitant]
     Route: 065
  5. DIGOXIN [Concomitant]
     Indication: ATRIAL FIBRILLATION
     Route: 065
     Dates: start: 20040421, end: 20040513
  6. DIGOXIN [Concomitant]
     Route: 065
     Dates: start: 20040514, end: 20040601
  7. WARFARIN [Concomitant]
     Route: 065

REACTIONS (4)
  - BODY TEMPERATURE INCREASED [None]
  - DIZZINESS [None]
  - FEELING ABNORMAL [None]
  - SWEATING FEVER [None]
